FAERS Safety Report 10013404 (Version 2)
Quarter: 2014Q1

REPORT INFORMATION
  Report Type: Spontaneous
  Country: BR (occurrence: BR)
  Receive Date: 20140314
  Receipt Date: 20140314
  Transmission Date: 20141002
  Serious: Yes (Other)
  Sender: FDA-Public Use
  Company Number: PHHY2014BR007918

PATIENT
  Sex: Female

DRUGS (2)
  1. TIMOLOL [Suspect]
     Indication: INTRAOCULAR PRESSURE INCREASED
     Dosage: UNK UKN, UNK
  2. XALATAN [Suspect]
     Indication: INTRAOCULAR PRESSURE INCREASED
     Dosage: UNK UKN, UNK

REACTIONS (2)
  - Intraocular pressure decreased [Unknown]
  - Drug ineffective [Unknown]
